FAERS Safety Report 25648046 (Version 1)
Quarter: 2025Q3

REPORT INFORMATION
  Report Type: Spontaneous
  Country: EU (occurrence: EU)
  Receive Date: 20250806
  Receipt Date: 20250806
  Transmission Date: 20251021
  Serious: Yes (Other)
  Sender: STRIDES
  Company Number: EU-STRIDES ARCOLAB LIMITED-2025SP009565

PATIENT

DRUGS (10)
  1. PREDNISONE [Suspect]
     Active Substance: PREDNISONE
     Indication: Plasma cell myeloma
     Route: 065
     Dates: start: 202210, end: 202210
  2. DOXORUBICIN [Suspect]
     Active Substance: DOXORUBICIN
     Indication: Plasma cell myeloma
     Route: 065
     Dates: start: 2022, end: 2022
  3. ETOPOSIDE [Suspect]
     Active Substance: ETOPOSIDE
     Indication: Plasma cell myeloma
     Route: 065
     Dates: start: 202210, end: 202210
  4. TOLODODEKIN ALFA [Suspect]
     Active Substance: TOLODODEKIN ALFA
     Indication: Plasma cell myeloma
     Route: 065
     Dates: start: 2022, end: 2022
  5. MELPHALAN [Suspect]
     Active Substance: MELPHALAN
     Indication: Plasma cell myeloma
     Route: 065
     Dates: start: 2022, end: 2022
  6. BORTEZOMIB [Suspect]
     Active Substance: BORTEZOMIB
     Indication: Plasma cell myeloma
     Route: 065
     Dates: start: 2022, end: 2022
  7. DEXAMETHASONE [Concomitant]
     Active Substance: DEXAMETHASONE
     Indication: Plasma cell myeloma
     Route: 065
     Dates: start: 202210, end: 202210
  8. CISPLATIN [Concomitant]
     Active Substance: CISPLATIN
     Indication: Plasma cell myeloma
     Route: 065
     Dates: start: 202210, end: 202210
  9. CYCLOPHOSPHAMIDE [Concomitant]
     Active Substance: CYCLOPHOSPHAMIDE
     Indication: Plasma cell myeloma
     Route: 065
     Dates: start: 202210, end: 202210
  10. BORTEZOMIB [Concomitant]
     Active Substance: BORTEZOMIB
     Indication: Plasma cell myeloma
     Dates: start: 202210, end: 202210

REACTIONS (2)
  - Neoplasm progression [Unknown]
  - Off label use [Unknown]

NARRATIVE: CASE EVENT DATE: 20220101
